FAERS Safety Report 7345355-3 (Version None)
Quarter: 2011Q1

REPORT INFORMATION
  Report Type: 
  Country: None (occurrence: None)
  Receive Date: 20110310
  Receipt Date: 20110301
  Transmission Date: 20110831
  Serious: Yes (Death, Hospitalization, Other)
  Sender: FDA-Public Use
  Company Number: US-MPIJNJ-2008_03840

PATIENT

DRUGS (2)
  1. VELCADE [Suspect]
     Indication: GLIOBLASTOMA MULTIFORME
     Dosage: 1.3 MG/M2, UNK
     Route: 040
     Dates: start: 20080919, end: 20080922
  2. VORINOSTAT [Suspect]
     Indication: GLIOBLASTOMA MULTIFORME
     Dosage: 400 MG, UNK
     Route: 048
     Dates: start: 20080919, end: 20080928

REACTIONS (6)
  - WHITE BLOOD CELL COUNT DECREASED [None]
  - CONVULSION [None]
  - NEUTROPHIL COUNT DECREASED [None]
  - PLATELET COUNT DECREASED [None]
  - PNEUMONIA ASPIRATION [None]
  - MUSCULAR WEAKNESS [None]
